FAERS Safety Report 21821921 (Version 2)
Quarter: 2023Q1

REPORT INFORMATION
  Report Type: Report from Study
  Country: US (occurrence: US)
  Receive Date: 20230105
  Receipt Date: 20230201
  Transmission Date: 20230418
  Serious: No
  Sender: FDA-Public Use
  Company Number: US-ABBVIE-4247996

PATIENT
  Sex: Male

DRUGS (2)
  1. RINVOQ [Suspect]
     Active Substance: UPADACITINIB
     Indication: Rheumatoid arthritis
     Route: 048
     Dates: start: 20201228
  2. TORADOL [Concomitant]
     Active Substance: KETOROLAC TROMETHAMINE
     Indication: Product used for unknown indication

REACTIONS (6)
  - Rheumatoid arthritis [Recovering/Resolving]
  - Arthropathy [Unknown]
  - Pain [Not Recovered/Not Resolved]
  - Mobility decreased [Recovering/Resolving]
  - Gait disturbance [Recovering/Resolving]
  - Dysstasia [Recovering/Resolving]

NARRATIVE: CASE EVENT DATE: 20220101
